FAERS Safety Report 11105111 (Version 2)
Quarter: 2015Q3

REPORT INFORMATION
  Report Type: Spontaneous
  Country: US (occurrence: US)
  Receive Date: 20150511
  Receipt Date: 20150721
  Transmission Date: 20151125
  Serious: Yes (Death, Hospitalization, Other)
  Sender: FDA-Public Use
  Company Number: US-GLAXOSMITHKLINE-US2015061934

PATIENT
  Age: 74 Year
  Sex: Male

DRUGS (11)
  1. GABAPENTIN. [Concomitant]
     Active Substance: GABAPENTIN
  2. DULCOLAX [Concomitant]
     Active Substance: BISACODYL OR DOCUSATE SODIUM
  3. MEKINIST [Suspect]
     Active Substance: TRAMETINIB DIMETHYL SULFOXIDE
     Indication: MALIGNANT MELANOMA
  4. ASPIRIN (BABY) [Concomitant]
     Active Substance: ASPIRIN
  5. MEKINIST [Suspect]
     Active Substance: TRAMETINIB DIMETHYL SULFOXIDE
     Indication: METASTATIC MALIGNANT MELANOMA
     Dosage: 2 MG, QD
     Route: 048
     Dates: start: 20150227, end: 20150425
  6. POLYETHYLENE GLYCOL 3350. [Concomitant]
     Active Substance: POLYETHYLENE GLYCOL 3350
  7. TAMSULOSIN [Concomitant]
     Active Substance: TAMSULOSIN
  8. TAFINLAR [Suspect]
     Active Substance: DABRAFENIB MESYLATE
     Indication: METASTATIC MALIGNANT MELANOMA
     Dosage: 150 MG, BID
     Route: 048
     Dates: start: 20150219
  9. TAFINLAR [Suspect]
     Active Substance: DABRAFENIB MESYLATE
     Indication: MALIGNANT MELANOMA
     Dosage: 75 MG, UNK
  10. AVODART [Concomitant]
     Active Substance: DUTASTERIDE
  11. CARVEDILOL. [Concomitant]
     Active Substance: CARVEDILOL

REACTIONS (9)
  - Fall [Recovering/Resolving]
  - Malignant melanoma [Fatal]
  - Nausea [Unknown]
  - Hospice care [Unknown]
  - Hypoaesthesia [Recovering/Resolving]
  - Dizziness [Unknown]
  - Muscular weakness [Recovering/Resolving]
  - Vomiting [Unknown]
  - Pyrexia [Recovering/Resolving]

NARRATIVE: CASE EVENT DATE: 20150425
